FAERS Safety Report 4408484-X (Version None)
Quarter: 2004Q3

REPORT INFORMATION
  Report Type: 
  Country: None (occurrence: None)
  Receive Date: 20040722
  Receipt Date: 20040716
  Transmission Date: 20050211
  Serious: Yes (Hospitalization)
  Sender: FDA-Public Use
  Company Number: KII-2004-0012343

PATIENT
  Age: 19 Month
  Sex: Male
  Weight: 9.1 kg

DRUGS (1)
  1. OXYCONTIN [Suspect]
     Dosage: 40 MG, ORAL
     Route: 048
     Dates: start: 20040624

REACTIONS (4)
  - ACCIDENTAL EXPOSURE [None]
  - BODY TEMPERATURE DECREASED [None]
  - RESPIRATORY RATE DECREASED [None]
  - SOMNOLENCE [None]
